FAERS Safety Report 23188561 (Version 2)
Quarter: 2023Q4

REPORT INFORMATION
  Report Type: Spontaneous
  Country: US (occurrence: US)
  Receive Date: 20231115
  Receipt Date: 20231219
  Transmission Date: 20240109
  Serious: No
  Sender: FDA-Public Use
  Company Number: US-PFIZER INC-202300367412

PATIENT
  Age: 78 Year
  Sex: Male
  Weight: 110.22 kg

DRUGS (1)
  1. NURTEC ODT [Suspect]
     Active Substance: RIMEGEPANT SULFATE
     Indication: Migraine
     Dosage: 75 MG, 1 DAILY AS NEEDED
     Route: 048
     Dates: start: 20230829, end: 20231030

REACTIONS (1)
  - Drug ineffective [Unknown]
